FAERS Safety Report 6263986-9 (Version None)
Quarter: 2009Q3

REPORT INFORMATION
  Report Type: 
  Country: None (occurrence: None)
  Receive Date: 20090710
  Receipt Date: 20090706
  Transmission Date: 20100115
  Serious: Yes (Life-Threatening)
  Sender: FDA-Public Use
  Company Number: AU-ASTRAZENECA-2009SE04019

PATIENT
  Age: 51 Year
  Sex: Female
  Weight: 50 kg

DRUGS (5)
  1. PROPOFOL [Suspect]
     Route: 042
  2. FENTANYL [Suspect]
     Dates: start: 20081212
  3. KEFLIN [Suspect]
     Indication: PROPHYLAXIS
     Route: 042
     Dates: start: 20081212, end: 20081212
  4. MIDAZOLAM HCL [Concomitant]
  5. PARECOXIB SODIUM [Concomitant]

REACTIONS (5)
  - BLOOD PRESSURE SYSTOLIC DECREASED [None]
  - HEART RATE INCREASED [None]
  - HOT FLUSH [None]
  - HYPOVENTILATION [None]
  - PULSE ABSENT [None]
